FAERS Safety Report 4523992-9 (Version None)
Quarter: 2004Q4

REPORT INFORMATION
  Report Type: 
  Country: None (occurrence: None)
  Receive Date: 20041210
  Receipt Date: 20031028
  Transmission Date: 20050328
  Serious: Yes (Hospitalization)
  Sender: FDA-Public Use
  Company Number: JP-ABBOTT-03P-087-0239299-00

PATIENT
  Sex: Female

DRUGS (21)
  1. NORVIR [Suspect]
     Indication: HIV INFECTION
     Route: 048
     Dates: start: 20020917, end: 20030724
  2. NORVIR [Suspect]
     Route: 048
     Dates: start: 20020315, end: 20020412
  3. NORVIR [Suspect]
     Route: 048
     Dates: start: 20020502, end: 20020607
  4. NORVIR [Suspect]
     Route: 048
     Dates: start: 20020628, end: 20020826
  5. NORVIR [Suspect]
     Route: 048
     Dates: start: 20020917, end: 20030724
  6. LAMIVUDINE [Suspect]
     Indication: HIV INFECTION
     Route: 048
     Dates: start: 20020917
  7. LAMIVUDINE [Suspect]
     Route: 048
     Dates: start: 20011005, end: 20020412
  8. LAMIVUDINE [Suspect]
     Route: 048
     Dates: start: 20020502, end: 20020607
  9. LAMIVUDINE [Suspect]
     Route: 048
     Dates: start: 20020628, end: 20020826
  10. STAVUDINE [Suspect]
     Indication: HIV INFECTION
     Route: 048
     Dates: start: 20020917, end: 20030724
  11. STAVUDINE [Suspect]
     Route: 048
     Dates: start: 20011005, end: 20020412
  12. STAVUDINE [Suspect]
     Route: 048
     Dates: start: 20020502, end: 20020607
  13. STAVUDINE [Suspect]
     Route: 048
     Dates: start: 20020628, end: 20020826
  14. SAQUINAVIR [Suspect]
     Indication: HIV INFECTION
     Route: 048
     Dates: start: 20020917, end: 20030724
  15. SAQUINAVIR [Suspect]
     Route: 048
     Dates: start: 20011229, end: 20020412
  16. SAQUINAVIR [Suspect]
     Route: 048
     Dates: start: 20020502, end: 20020607
  17. SAQUINAVIR [Suspect]
     Route: 048
     Dates: start: 20020628, end: 20020826
  18. TESTOSTERONE ENANTATE [Concomitant]
     Indication: VIRILISM
     Route: 030
     Dates: start: 20020823
  19. EFAVIRENZ [Concomitant]
     Indication: HIV INFECTION
     Route: 048
     Dates: start: 20030725
  20. DIDANOSINE [Concomitant]
     Indication: HIV INFECTION
     Route: 048
     Dates: start: 20030725, end: 20030827
  21. DIDANOSINE [Concomitant]
     Route: 048
     Dates: start: 20030828

REACTIONS (2)
  - BLOOD URIC ACID INCREASED [None]
  - CERVIX CARCINOMA STAGE 0 [None]
